FAERS Safety Report 5354062-8 (Version None)
Quarter: 2007Q2

REPORT INFORMATION
  Report Type: 
  Country: None (occurrence: None)
  Receive Date: 20070612
  Receipt Date: 20070608
  Transmission Date: 20071010
  Serious: Yes (Hospitalization)
  Sender: FDA-Public Use
  Company Number: A0654845A

PATIENT
  Age: 25 Year
  Sex: Female

DRUGS (2)
  1. WELLBUTRIN [Suspect]
     Indication: DEPRESSION
     Dosage: 10MG PER DAY
     Route: 048
     Dates: start: 20060101
  2. TRILEPTAL [Concomitant]

REACTIONS (6)
  - DEHYDRATION [None]
  - HAEMATEMESIS [None]
  - HYPERHIDROSIS [None]
  - MIGRAINE [None]
  - SEROTONIN SYNDROME [None]
  - TREMOR [None]
